FAERS Safety Report 9577967 (Version 1)
Quarter: 2013Q4

REPORT INFORMATION
  Report Type: Spontaneous
  Country: US (occurrence: US)
  Receive Date: 20131001
  Receipt Date: 20131001
  Transmission Date: 20140711
  Serious: No
  Sender: FDA-Public Use
  Company Number: US-AMGEN-USASP2013010890

PATIENT
  Sex: Female
  Weight: 59.86 kg

DRUGS (7)
  1. ENBREL [Suspect]
     Indication: RHEUMATOID ARTHRITIS
     Dosage: 50 MG, QWK
     Route: 058
  2. GABAPENTIN [Concomitant]
     Dosage: 100 MG, UNK
  3. HUMIRA [Concomitant]
     Dosage: 40 MG, UNK
  4. LEVOTHYROXIN [Concomitant]
     Dosage: 100 MUG, UNK
  5. ROPINIROLE [Concomitant]
     Dosage: 1 MG, UNK
  6. CHANTIX [Concomitant]
     Dosage: 1 MG, UNK
  7. TRAMADOL                           /00599202/ [Concomitant]
     Dosage: 50 MG, UNK

REACTIONS (3)
  - Local swelling [Unknown]
  - Rash [Unknown]
  - Injection site bruising [Unknown]
